FAERS Safety Report 7408313-6 (Version None)
Quarter: 2011Q2

REPORT INFORMATION
  Report Type: 
  Country: None (occurrence: None)
  Receive Date: 20110412
  Receipt Date: 20110404
  Transmission Date: 20111010
  Serious: Yes (Other)
  Sender: FDA-Public Use
  Company Number: US-JNJFOC-20100702321

PATIENT
  Sex: Male

DRUGS (2)
  1. LEVAQUIN [Suspect]
     Indication: BRONCHITIS
     Route: 048
  2. METHYLPREDNISOLONE [Suspect]
     Indication: PAIN
     Route: 065

REACTIONS (3)
  - TENDON RUPTURE [None]
  - TENDONITIS [None]
  - EPICONDYLITIS [None]
